FAERS Safety Report 9508232 (Version 2)
Quarter: 2013Q3

REPORT INFORMATION
  Report Type: Spontaneous
  Country: US (occurrence: US)
  Receive Date: 20130909
  Receipt Date: 20130924
  Transmission Date: 20140515
  Serious: No
  Sender: FDA-Public Use
  Company Number: US-PFIZER INC-2013255654

PATIENT
  Sex: Male

DRUGS (4)
  1. CHILDREN^S MOTRIN [Suspect]
     Dosage: UNK
     Route: 048
  2. TYLENOL [Suspect]
     Dosage: UNK
     Route: 048
  3. BABY ADVIL [Suspect]
     Dosage: UNK
     Route: 048
  4. TEMPRA [Suspect]
     Dosage: UNK
     Route: 048

REACTIONS (1)
  - Drug ineffective [Unknown]
